FAERS Safety Report 17959866 (Version 1)
Quarter: 2020Q2

REPORT INFORMATION
  Report Type: Spontaneous
  Country: US (occurrence: US)
  Receive Date: 20200629
  Receipt Date: 20200629
  Transmission Date: 20200714
  Serious: Yes (Hospitalization)
  Sender: FDA-Public Use
  Company Number: None

PATIENT
  Age: 60 Year
  Sex: Male

DRUGS (1)
  1. ETODOLAC (ETODOLAC 400MG TAB) [Suspect]
     Active Substance: ETODOLAC
     Indication: GASTRIC ULCER PERFORATION
     Dates: start: 20200212, end: 20200406

REACTIONS (1)
  - Abdominal pain [None]

NARRATIVE: CASE EVENT DATE: 20200406
